FAERS Safety Report 6774103-0 (Version None)
Quarter: 2010Q2

REPORT INFORMATION
  Report Type: 
  Country: None (occurrence: None)
  Receive Date: 20100615
  Receipt Date: 20100615
  Transmission Date: 20101027
  Serious: Yes (Other)
  Sender: FDA-Public Use
  Company Number: None

PATIENT
  Age: 23 Year
  Sex: Female
  Weight: 54.4316 kg

DRUGS (2)
  1. OCELLA 1 A DAY 047 [Suspect]
     Indication: CONTRACEPTION
     Dosage: 1 A DAY 047
     Dates: start: 20080601, end: 20081001
  2. LUTERA .1MG / .02 MG [Suspect]
     Indication: CONTRACEPTION
     Dosage: (.1MG/.02MG) 1 A DAY 047
     Dates: start: 20080901, end: 20090201

REACTIONS (9)
  - ABDOMINAL PAIN [None]
  - DEPRESSION [None]
  - DYSPNOEA [None]
  - LOSS OF LIBIDO [None]
  - MOOD ALTERED [None]
  - NAUSEA [None]
  - SUICIDAL IDEATION [None]
  - THINKING ABNORMAL [None]
  - WEIGHT DECREASED [None]
